FAERS Safety Report 4531733-4 (Version None)
Quarter: 2004Q4

REPORT INFORMATION
  Report Type: 
  Country: None (occurrence: None)
  Receive Date: 20041220
  Receipt Date: 20030404
  Transmission Date: 20050328
  Serious: Yes (Hospitalization)
  Sender: FDA-Public Use
  Company Number: TR-ROCHE-335345

PATIENT
  Age: 38 Year
  Sex: Female
  Weight: 71 kg

DRUGS (8)
  1. DACLIZUMAB [Suspect]
     Route: 042
     Dates: start: 20030331, end: 20030331
  2. DACLIZUMAB [Suspect]
     Route: 042
     Dates: start: 20030415, end: 20030515
  3. MYCOPHENOLATE MOFETIL [Suspect]
     Route: 048
     Dates: start: 20030331
  4. SIROLIMUS [Suspect]
     Route: 048
     Dates: start: 20030331
  5. SIROLIMUS [Suspect]
     Route: 048
     Dates: start: 20030415
  6. PREDNISOLONE [Suspect]
     Route: 048
     Dates: start: 20030331
  7. DILTIAZEM [Concomitant]
     Route: 048
     Dates: start: 20030402
  8. PANTOPRAZOL [Concomitant]
     Route: 048
     Dates: start: 20030415

REACTIONS (6)
  - BRAIN MASS [None]
  - CENTRAL NERVOUS SYSTEM LESION [None]
  - COMPLICATIONS OF TRANSPLANTED KIDNEY [None]
  - CONVULSION [None]
  - PHARYNGITIS [None]
  - URETHRAL DISORDER [None]
